FAERS Safety Report 25808423 (Version 1)
Quarter: 2025Q3

REPORT INFORMATION
  Report Type: Spontaneous
  Country: US (occurrence: US)
  Receive Date: 20250916
  Receipt Date: 20250916
  Transmission Date: 20251021
  Serious: No
  Sender: LUNDBECK
  Company Number: US-LUNDBECK-DKLU4019216

PATIENT
  Age: 30 Year
  Sex: Male

DRUGS (2)
  1. ONFI [Suspect]
     Active Substance: CLOBAZAM
     Indication: Product used for unknown indication
  2. ONFI [Suspect]
     Active Substance: CLOBAZAM
     Dates: start: 20250714

REACTIONS (2)
  - Sluggishness [Recovering/Resolving]
  - Hypersomnia [Recovering/Resolving]
